FAERS Safety Report 6819423-6 (Version None)
Quarter: 2010Q3

REPORT INFORMATION
  Report Type: 
  Country: None (occurrence: None)
  Receive Date: 20100707
  Receipt Date: 20100628
  Transmission Date: 20110219
  Serious: Yes (Other)
  Sender: FDA-Public Use
  Company Number: US-PFIZER INC-2010081200

PATIENT
  Sex: Female
  Weight: 104.3 kg

DRUGS (5)
  1. LIPITOR [Suspect]
     Indication: BLOOD CHOLESTEROL INCREASED
     Dosage: UNK
     Route: 048
     Dates: start: 20090101, end: 20090101
  2. FUROSEMIDE [Suspect]
     Indication: FLUID RETENTION
     Dosage: UNK
  3. FUROSEMIDE [Suspect]
     Indication: SKIN DISCOLOURATION
  4. CRESTOR [Suspect]
     Dosage: UNK
  5. CLARITIN [Suspect]
     Dosage: UNK

REACTIONS (7)
  - BLOOD CHOLESTEROL INCREASED [None]
  - BODY HEIGHT DECREASED [None]
  - DIABETES MELLITUS [None]
  - DRUG INEFFECTIVE [None]
  - GOUT [None]
  - HEADACHE [None]
  - ILL-DEFINED DISORDER [None]
